FAERS Safety Report 9124278 (Version 1)
Quarter: 2013Q1

REPORT INFORMATION
  Report Type: Other
  Country: GB (occurrence: GB)
  Receive Date: 20130227
  Receipt Date: 20130227
  Transmission Date: 20140127
  Serious: Yes (Other)
  Sender: FDA-Public Use
  Company Number: GB-WATSON-2013-02866

PATIENT
  Age: 11 Year
  Sex: Female
  Weight: 50 kg

DRUGS (3)
  1. ACYCLOVIR (UNKNOWN) [Suspect]
     Indication: HERPES SIMPLEX MENINGOENCEPHALITIS
     Dosage: 650 MG, UNKNOWN
     Route: 042
     Dates: start: 20130201, end: 20130203
  2. CEFTRIAXONE [Concomitant]
     Indication: PRODUCT USED FOR UNKNOWN INDICATION
     Dosage: UNK, UNKNOWN
     Route: 065
  3. PHENYTOIN [Concomitant]
     Indication: PRODUCT USED FOR UNKNOWN INDICATION
     Dosage: UNK, UNKNOWN
     Route: 065

REACTIONS (2)
  - Renal failure acute [Unknown]
  - Glomerular filtration rate decreased [Unknown]
